FAERS Safety Report 4429827-7 (Version None)
Quarter: 2004Q3

REPORT INFORMATION
  Report Type: 
  Country: None (occurrence: None)
  Receive Date: 20040817
  Receipt Date: 20040804
  Transmission Date: 20050211
  Serious: Yes (Other)
  Sender: FDA-Public Use
  Company Number: 2004053349

PATIENT
  Sex: Male
  Weight: 81.6475 kg

DRUGS (11)
  1. LIPITOR [Suspect]
     Indication: BLOOD CHOLESTEROL INCREASED
     Dosage: 10 MG (10 MG, 1 IN 1 D), ORAL
     Route: 048
  2. CELECOXIB (CELECOXIB) [Suspect]
     Indication: OSTEOARTHRITIS
     Dosage: 400 MG (200 MG, 2 IN 1 D)
  3. ALENDRONATE SODIUM [Concomitant]
  4. CALCIUM (CALCIUM) [Concomitant]
  5. FELODIPINE [Concomitant]
  6. IRBESARTAN (IRBESARTAN) [Concomitant]
  7. NICOTINIC ACID [Concomitant]
  8. ASPIRIN [Concomitant]
  9. MULTIVITAMINS (ASCORBIC ACID, ERGOCALCIFEROL, FOLIC ACID, NICOTINAMIDE [Concomitant]
  10. FISH OIL (FISH OIL) [Concomitant]
  11. TOCOPHEROL CONCENTRATE CAP [Concomitant]

REACTIONS (2)
  - ANGINA PECTORIS [None]
  - MYOCARDIAL INFARCTION [None]
